FAERS Safety Report 5609031-7 (Version None)
Quarter: 2008Q1

REPORT INFORMATION
  Report Type: 
  Country: None (occurrence: None)
  Receive Date: 20080131
  Receipt Date: 20080129
  Transmission Date: 20080703
  Serious: Yes (Death, Hospitalization)
  Sender: FDA-Public Use
  Company Number: KR-WYE-H01516407

PATIENT
  Sex: Female
  Weight: 60 kg

DRUGS (13)
  1. SIROLIMUS [Suspect]
     Indication: PROPHYLAXIS AGAINST TRANSPLANT REJECTION
     Route: 048
     Dates: start: 20071106, end: 20071101
  2. SIROLIMUS [Suspect]
     Dosage: UNSPECIFIED
     Route: 048
     Dates: start: 20071101, end: 20071128
  3. ZID ^YUHAN^ [Concomitant]
     Indication: ANTIBIOTIC PROPHYLAXIS
     Route: 048
     Dates: start: 20071106
  4. MYCOSTATIN [Concomitant]
     Indication: PROPHYLAXIS
     Route: 048
     Dates: start: 20071106, end: 20080115
  5. AMLODIPINE [Concomitant]
     Indication: HYPERTENSION
     Route: 048
     Dates: start: 20070201, end: 20080115
  6. DIFLUCAN [Concomitant]
     Indication: ORAL CANDIDIASIS
     Route: 042
     Dates: start: 20071120, end: 20080115
  7. METHYLPREDNISOLONE [Concomitant]
     Indication: PROPHYLAXIS AGAINST TRANSPLANT REJECTION
     Route: 048
     Dates: start: 20071104, end: 20080115
  8. GASTER [Concomitant]
     Indication: PROPHYLAXIS AGAINST GASTROINTESTINAL ULCER
     Dosage: 20 MG EVERY
     Route: 048
     Dates: start: 20071105
  9. SEPTRIN [Concomitant]
     Indication: INFECTION PROPHYLAXIS
     Dosage: 2 DAILY
     Route: 048
     Dates: start: 20071108, end: 20080115
  10. CYCLOSPORINE [Concomitant]
     Indication: PROPHYLAXIS AGAINST TRANSPLANT REJECTION
     Route: 048
     Dates: start: 20071106
  11. MEGACE [Concomitant]
     Route: 048
     Dates: start: 20071124, end: 20080115
  12. PYRIDOXINE [Concomitant]
     Indication: ANAEMIA PROPHYLAXIS
     Route: 048
     Dates: start: 20071106
  13. DILATREND [Concomitant]
     Route: 048
     Dates: start: 20070201, end: 20080115

REACTIONS (4)
  - MYOCARDIAL INFARCTION [None]
  - PNEUMONIA [None]
  - RESPIRATORY ARREST [None]
  - THROMBOCYTOPENIA [None]
